FAERS Safety Report 5991061-7 (Version None)
Quarter: 2008Q4

REPORT INFORMATION
  Report Type: 
  Country: None (occurrence: None)
  Receive Date: 20081211
  Receipt Date: 20080423
  Transmission Date: 20090506
  Serious: No
  Sender: FDA-Public Use
  Company Number: US-AMGEN-KDL276078

PATIENT
  Sex: Male

DRUGS (3)
  1. ENBREL [Suspect]
     Indication: RHEUMATOID ARTHRITIS
     Route: 058
     Dates: start: 20030601
  2. SULFASALAZINE [Concomitant]
     Dates: start: 20030101
  3. PLAQUENIL [Concomitant]
     Dates: start: 20030101

REACTIONS (3)
  - COUGH [None]
  - SINUS DISORDER [None]
  - THROAT IRRITATION [None]
